FAERS Safety Report 8544499-8 (Version None)
Quarter: 2012Q3

REPORT INFORMATION
  Report Type: 
  Country: None (occurrence: None)
  Receive Date: 20120727
  Receipt Date: 20120719
  Transmission Date: 20120928
  Serious: Yes (Other)
  Sender: FDA-Public Use
  Company Number: CN-BAXTER-2012BAX012196

PATIENT
  Sex: Female
  Weight: 56 kg

DRUGS (3)
  1. METRONIDAZOLE [Suspect]
     Indication: MYOMETRITIS
     Route: 041
     Dates: start: 20090708, end: 20090710
  2. AZITHROMYCIN [Suspect]
     Indication: MYOMETRITIS
     Route: 041
     Dates: start: 20090708, end: 20090710
  3. SODIUM CHLORIDE INJ [Suspect]
     Indication: MYOMETRITIS
     Route: 041
     Dates: start: 20090708, end: 20090710

REACTIONS (1)
  - URTICARIA [None]
